FAERS Safety Report 10286254 (Version 1)
Quarter: 2014Q3

REPORT INFORMATION
  Report Type: Spontaneous
  Country: US (occurrence: None)
  Receive Date: 20140707
  Receipt Date: 20140707
  Transmission Date: 20150326
  Serious: Yes (Other)
  Sender: FDA-Public Use
  Company Number: 2014VER00067

PATIENT
  Age: 17 Year
  Sex: Female

DRUGS (1)
  1. MYORISAN [Suspect]
     Active Substance: ISOTRETINOIN
     Dosage: 1X/DAY
     Dates: start: 20130127

REACTIONS (1)
  - Maternal exposure before pregnancy [None]

NARRATIVE: CASE EVENT DATE: 20140602
